FAERS Safety Report 10435051 (Version 1)
Quarter: 2014Q2

REPORT INFORMATION
  Report Type: Spontaneous
  Country: US (occurrence: None)
  Receive Date: 20140618
  Receipt Date: 20140618
  Transmission Date: 20141212
  Serious: Yes (Hospitalization)
  Sender: FDA-Public Use
  Company Number: 107075U

PATIENT
  Sex: 0

DRUGS (10)
  1. LACOSAMIDE [Suspect]
     Dosage: (UNKNOWN DOSE)
  2. KEPPRA [Suspect]
  3. DEPAKOTE [Concomitant]
  4. GABATRIL [Concomitant]
  5. LAMICTAL [Concomitant]
  6. TEGRETOL [Concomitant]
  7. CLONAZEPAM [Concomitant]
  8. PELSONFILINA [Concomitant]
  9. PHENOBARBITAL [Concomitant]
  10. TOPAMAX [Concomitant]

REACTIONS (2)
  - Convulsion [None]
  - Drug hypersensitivity [None]
